FAERS Safety Report 17280017 (Version 2)
Quarter: 2020Q1

REPORT INFORMATION
  Report Type: Report from Study
  Country: US (occurrence: US)
  Receive Date: 20200117
  Receipt Date: 20200128
  Transmission Date: 20200409
  Serious: Yes (Other)
  Sender: FDA-Public Use
  Company Number: US-BEH-2020111733

PATIENT

DRUGS (6)
  1. BERIPLEX P/N [Suspect]
     Active Substance: COAGULATION FACTOR IX HUMAN\COAGULATION FACTOR VII HUMAN\COAGULATION FACTOR X HUMAN\PROTEIN C\PROTEIN S HUMAN\PROTHROMBIN
     Indication: PROCOAGULANT THERAPY
  2. BERIPLEX P/N [Suspect]
     Active Substance: COAGULATION FACTOR IX HUMAN\COAGULATION FACTOR VII HUMAN\COAGULATION FACTOR X HUMAN\PROTEIN C\PROTEIN S HUMAN\PROTHROMBIN
     Indication: INTRAVENTRICULAR HAEMORRHAGE
     Dosage: APPROXIMATELY 1500 INTERNATIONAL UNIT
     Route: 065
  3. VITAMIN K [Suspect]
     Active Substance: PHYTONADIONE
     Indication: PROCOAGULANT THERAPY
  4. BERIPLEX P/N [Suspect]
     Active Substance: COAGULATION FACTOR IX HUMAN\COAGULATION FACTOR VII HUMAN\COAGULATION FACTOR X HUMAN\PROTEIN C\PROTEIN S HUMAN\PROTHROMBIN
     Indication: PROCOAGULANT THERAPY
  5. VITAMIN K [Suspect]
     Active Substance: PHYTONADIONE
     Indication: INTRAVENTRICULAR HAEMORRHAGE
     Dosage: 10 MILLIGRAM
     Route: 042
  6. BERIPLEX P/N [Suspect]
     Active Substance: COAGULATION FACTOR IX HUMAN\COAGULATION FACTOR VII HUMAN\COAGULATION FACTOR X HUMAN\PROTEIN C\PROTEIN S HUMAN\PROTHROMBIN
     Indication: INTRAVENTRICULAR HAEMORRHAGE
     Dosage: APPROXIMATELY 1500 INTERNATIONAL UNIT
     Route: 065

REACTIONS (1)
  - Lacunar stroke [Unknown]
